FAERS Safety Report 18957242 (Version 1)
Quarter: 2021Q1

REPORT INFORMATION
  Report Type: Spontaneous
  Country: US (occurrence: US)
  Receive Date: 20210301
  Receipt Date: 20210301
  Transmission Date: 20210420
  Serious: Yes (Other)
  Sender: FDA-Public Use
  Company Number: None

PATIENT
  Sex: Male

DRUGS (8)
  1. PREDNISON [Concomitant]
     Active Substance: PREDNISONE
  2. ROSUVAST [Concomitant]
  3. ZYTIGA [Suspect]
     Active Substance: ABIRATERONE ACETATE
     Indication: PRODUCT USED FOR UNKNOWN INDICATION
     Route: 048
     Dates: start: 20170928
  4. LOSARTAN. [Concomitant]
     Active Substance: LOSARTAN
  5. FUROSEMIDE. [Concomitant]
     Active Substance: FUROSEMIDE
  6. AMLODIPINE [Concomitant]
     Active Substance: AMLODIPINE BESYLATE
  7. METOPROLOL TARTRATE. [Concomitant]
     Active Substance: METOPROLOL TARTRATE
  8. TERAZ [Concomitant]

REACTIONS (3)
  - Product dose omission issue [None]
  - Cerebrovascular accident [None]
  - Insurance issue [None]
